FAERS Safety Report 8461136-1 (Version None)
Quarter: 2012Q2

REPORT INFORMATION
  Report Type: 
  Country: None (occurrence: None)
  Receive Date: 20120625
  Receipt Date: 20120619
  Transmission Date: 20120825
  Serious: No
  Sender: FDA-Public Use
  Company Number: US-PFIZER INC-2012110034

PATIENT
  Sex: Female
  Weight: 77.1 kg

DRUGS (2)
  1. AMLODIPINE BESYLATE [Suspect]
     Indication: CARDIAC DISORDER
     Dosage: 5 MG, DAILY.
     Route: 048
     Dates: start: 20120101, end: 20120101
  2. AMLODIPINE BESYLATE [Suspect]
     Dosage: UNK, DAILY
     Route: 048
     Dates: end: 20120101

REACTIONS (1)
  - OEDEMA PERIPHERAL [None]
